FAERS Safety Report 23759790 (Version 2)
Quarter: 2024Q2

REPORT INFORMATION
  Report Type: Report from Study
  Country: US (occurrence: US)
  Receive Date: 20240419
  Receipt Date: 20240524
  Transmission Date: 20240716
  Serious: No
  Sender: FDA-Public Use
  Company Number: US-ACADIA PHARMACEUTICALS INC.-ACA-2024-TRF-001242

PATIENT
  Age: 3 Year
  Sex: Female

DRUGS (4)
  1. DAYBUE [Suspect]
     Active Substance: TROFINETIDE
     Indication: Rett syndrome
     Dosage: 2.5 MILLILITER, BID
     Route: 048
     Dates: start: 20240307
  2. DAYBUE [Suspect]
     Active Substance: TROFINETIDE
     Dosage: 10 MILLILITER, BID
     Route: 048
     Dates: start: 20240328
  3. DAYBUE [Suspect]
     Active Substance: TROFINETIDE
     Dosage: 15 MILLILITER, BID
     Route: 048
  4. DAYBUE [Suspect]
     Active Substance: TROFINETIDE
     Dosage: 20 MILLILITER, BID
     Route: 048
     Dates: start: 20240425

REACTIONS (6)
  - Constipation [Not Recovered/Not Resolved]
  - Underdose [Not Recovered/Not Resolved]
  - Somnolence [Not Recovered/Not Resolved]
  - Somnolence [Not Recovered/Not Resolved]
  - Fatigue [Not Recovered/Not Resolved]
  - Pyrexia [Recovered/Resolved]

NARRATIVE: CASE EVENT DATE: 20240307
